FAERS Safety Report 17236719 (Version 2)
Quarter: 2020Q1

REPORT INFORMATION
  Report Type: Spontaneous
  Country: US (occurrence: US)
  Receive Date: 20200106
  Receipt Date: 20200116
  Transmission Date: 20200409
  Serious: No
  Sender: FDA-Public Use
  Company Number: US-BAYER-2020-001175

PATIENT
  Age: 29 Year
  Sex: Female

DRUGS (1)
  1. NATAZIA [Suspect]
     Active Substance: DIENOGEST\ESTRADIOL VALERATE
     Indication: ENDOMETRIOSIS
     Dosage: UNK
     Route: 048

REACTIONS (3)
  - Drug effective for unapproved indication [None]
  - Product use in unapproved indication [None]
  - Off label use [None]
